FAERS Safety Report 14559002 (Version 1)
Quarter: 2018Q1

REPORT INFORMATION
  Report Type: Spontaneous
  Country: JP (occurrence: JP)
  Receive Date: 20180221
  Receipt Date: 20180221
  Transmission Date: 20180509
  Serious: Yes (Death, Other)
  Sender: FDA-Public Use
  Company Number: JP-BRISTOL-MYERS SQUIBB COMPANY-BMS-2018-015376

PATIENT

DRUGS (1)
  1. ELIQUIS [Suspect]
     Active Substance: APIXABAN
     Indication: TROUSSEAU^S SYNDROME
     Route: 065

REACTIONS (4)
  - Product use in unapproved indication [Unknown]
  - Haemorrhagic diathesis [Unknown]
  - Neoplasm [Fatal]
  - Therapeutic response decreased [Unknown]
